FAERS Safety Report 24004208 (Version 1)
Quarter: 2024Q2

REPORT INFORMATION
  Report Type: Report from Study
  Country: US (occurrence: None)
  Receive Date: 20240624
  Receipt Date: 20240624
  Transmission Date: 20240716
  Serious: Yes (Hospitalization, Other)
  Sender: FDA-Public Use
  Company Number: US-MAIA Pharmaceuticals, Inc.-MAI202406-000019

PATIENT
  Age: 16 Year
  Sex: Female

DRUGS (3)
  1. BACLOFEN [Suspect]
     Active Substance: BACLOFEN
     Indication: Dystonia
     Dosage: 2400 MCG
     Route: 037
  2. BACLOFEN [Suspect]
     Active Substance: BACLOFEN
     Dosage: 2220 MCG (DECREASED BY 7.5 PERCENT)
     Route: 037
  3. BACLOFEN [Suspect]
     Active Substance: BACLOFEN
     Dosage: 1955.6  MCG (DECREASED EVERY 24 H BY 4.9 PERCENT TO 7.5 PERCENT FOR 2 DAYS)
     Route: 037

REACTIONS (6)
  - Lethargy [Unknown]
  - Toxicity to various agents [Unknown]
  - Dysphagia [Recovering/Resolving]
  - Respiratory depression [Recovering/Resolving]
  - Nystagmus [Recovering/Resolving]
  - Product use in unapproved indication [Unknown]
